FAERS Safety Report 6715676-3 (Version None)
Quarter: 2010Q2

REPORT INFORMATION
  Report Type: 
  Country: None (occurrence: None)
  Receive Date: 20100507
  Receipt Date: 20090824
  Transmission Date: 20101027
  Serious: No
  Sender: FDA-Public Use
  Company Number: A0803788A

PATIENT
  Age: 67 Year
  Sex: Male

DRUGS (5)
  1. DYNACIRC CR [Suspect]
     Indication: HYPERTENSION
     Dosage: 10MG PER DAY
     Route: 048
     Dates: start: 19930101, end: 20090801
  2. LISINOPRIL [Suspect]
     Indication: HYPERTENSION
     Route: 048
  3. INNOPRAN XL [Concomitant]
     Indication: HYPERTENSION
     Dosage: 80MG PER DAY
     Route: 048
     Dates: start: 19990101
  4. GRAPEFRUIT JUICE [Concomitant]
     Indication: HYPERTENSION
  5. ASPIRIN [Concomitant]

REACTIONS (1)
  - DRUG INEFFECTIVE [None]
